FAERS Safety Report 5022057-X (Version None)
Quarter: 2006Q2

REPORT INFORMATION
  Report Type: 
  Country: None (occurrence: None)
  Receive Date: 20060609
  Receipt Date: 20060601
  Transmission Date: 20061013
  Serious: Yes (Hospitalization)
  Sender: FDA-Public Use
  Company Number: BE-ABBOTT-06P-013-0334889-00

PATIENT
  Weight: 84 kg

DRUGS (11)
  1. KALETRA [Suspect]
     Indication: HIV INFECTION
     Route: 048
     Dates: start: 20060321
  2. VIREAD [Concomitant]
     Indication: HIV INFECTION
     Route: 048
     Dates: start: 20060413
  3. NEVIRAPINE [Concomitant]
     Indication: HIV INFECTION
     Route: 048
     Dates: start: 20040819
  4. LAMIVUDINE [Concomitant]
     Indication: HIV INFECTION
     Route: 048
     Dates: start: 20040627
  5. FOLIC ACID [Concomitant]
     Indication: FOLATE DEFICIENCY
     Route: 048
  6. PRAVASTATIN [Concomitant]
     Indication: BLOOD CHOLESTEROL INCREASED
     Route: 048
     Dates: start: 20040914
  7. BEFACT FORTE [Concomitant]
     Indication: DRUG USE FOR UNKNOWN INDICATION
     Route: 048
  8. ERGENYL CHRONO [Concomitant]
     Indication: EPILEPSY
     Route: 048
     Dates: start: 20040914
  9. AMITRIPTYLINE HYDROCHLORIDE [Concomitant]
     Indication: POLYNEUROPATHY
     Route: 048
     Dates: start: 20041017
  10. BETUELAR V [Concomitant]
     Indication: ECZEMA
     Route: 061
     Dates: start: 20050321
  11. TRISIVIR [Concomitant]
     Indication: DRUG USE FOR UNKNOWN INDICATION

REACTIONS (3)
  - ANAEMIA MEGALOBLASTIC [None]
  - DYSPNOEA [None]
  - FATIGUE [None]
